FAERS Safety Report 5512124-6 (Version None)
Quarter: 2007Q4

REPORT INFORMATION
  Report Type: 
  Country: None (occurrence: None)
  Receive Date: 20071109
  Receipt Date: 20071026
  Transmission Date: 20080405
  Serious: Yes (Hospitalization)
  Sender: FDA-Public Use
  Company Number: JP-PFIZER INC-2007092958

PATIENT
  Sex: Male

DRUGS (1)
  1. MIGLITOL TABLET [Suspect]
     Route: 048

REACTIONS (1)
  - HEPATIC FUNCTION ABNORMAL [None]
